FAERS Safety Report 25393738 (Version 1)
Quarter: 2025Q2

REPORT INFORMATION
  Report Type: Report from Study
  Country: IN (occurrence: IN)
  Receive Date: 20250604
  Receipt Date: 20250604
  Transmission Date: 20250716
  Serious: Yes (Death, Other)
  Sender: ROCHE
  Company Number: IN-ROCHE-10000301124

PATIENT

DRUGS (5)
  1. RITUXIMAB [Suspect]
     Active Substance: RITUXIMAB
     Indication: Lymphoma
     Route: 065
  2. BENDAMUSTINE [Suspect]
     Active Substance: BENDAMUSTINE
     Indication: Prophylaxis against transplant rejection
     Route: 065
  3. CYTARABINE [Suspect]
     Active Substance: CYTARABINE
     Indication: Prophylaxis against transplant rejection
     Route: 065
  4. CYCLOPHOSPHAMIDE [Suspect]
     Active Substance: CYCLOPHOSPHAMIDE
     Indication: Prophylaxis against transplant rejection
     Route: 065
  5. ETOPOSIDE [Suspect]
     Active Substance: ETOPOSIDE
     Indication: Prophylaxis against transplant rejection
     Route: 065

REACTIONS (8)
  - Dengue fever [Fatal]
  - COVID-19 pneumonia [Fatal]
  - Anaemia [Unknown]
  - Neutropenia [Unknown]
  - Thrombocytopenia [Unknown]
  - Febrile neutropenia [Unknown]
  - Mucosal inflammation [Unknown]
  - Klebsiella infection [Unknown]
